FAERS Safety Report 19191389 (Version 2)
Quarter: 2021Q3

REPORT INFORMATION
  Report Type: Spontaneous
  Country: US (occurrence: US)
  Receive Date: 20210429
  Receipt Date: 20210823
  Transmission Date: 20211014
  Serious: Yes (Other)
  Sender: FDA-Public Use
  Company Number: US-AKCEA THERAPEUTICS, INC.-2021IS001079

PATIENT
  Age: 37 Year
  Sex: Female

DRUGS (2)
  1. ISSD (INTEGRATED SYRINGE SAFETY DEVICE) [Suspect]
     Active Substance: DEVICE
  2. TEGSEDI [Suspect]
     Active Substance: INOTERSEN SODIUM
     Indication: HEREDITARY NEUROPATHIC AMYLOIDOSIS
     Route: 058
     Dates: start: 20210115

REACTIONS (13)
  - Urine abnormality [Unknown]
  - Blood creatinine abnormal [Unknown]
  - Urinary occult blood positive [Unknown]
  - Nitrite urine present [Unknown]
  - Protein urine present [Unknown]
  - Urinary sediment present [Unknown]
  - Urine protein/creatinine ratio increased [Unknown]
  - White blood cells urine positive [Unknown]
  - Platelet count decreased [Unknown]
  - Urine leukocyte esterase positive [Unknown]
  - Bacterial test positive [Unknown]
  - Red blood cells urine positive [Unknown]
  - Urinary tract infection [Unknown]

NARRATIVE: CASE EVENT DATE: 20210616
